FAERS Safety Report 7592388-8 (Version None)
Quarter: 2011Q3

REPORT INFORMATION
  Report Type: 
  Country: None (occurrence: None)
  Receive Date: 20110705
  Receipt Date: 20110705
  Transmission Date: 20111222
  Serious: Yes (Other)
  Sender: FDA-Public Use
  Company Number: None

PATIENT
  Age: 46 Year
  Sex: Female
  Weight: 87.9978 kg

DRUGS (1)
  1. BACTROBAN [Suspect]
     Indication: SKIN DISORDER
     Dosage: 2% QD TOPICAL
     Route: 061
     Dates: start: 20090101, end: 20090101

REACTIONS (2)
  - APPLICATION SITE BURN [None]
  - APPLICATION SITE ERYTHEMA [None]
